FAERS Safety Report 19112531 (Version 1)
Quarter: 2021Q2

REPORT INFORMATION
  Report Type: Spontaneous
  Country: IT (occurrence: IT)
  Receive Date: 20210408
  Receipt Date: 20210408
  Transmission Date: 20210717
  Serious: Yes (Other)
  Sender: FDA-Public Use
  Company Number: IT-TEVA-2021-IT-1898333

PATIENT
  Age: 71 Year
  Sex: Female
  Weight: 52 kg

DRUGS (5)
  1. FLUOROURACILE TEVA [Suspect]
     Active Substance: FLUOROURACIL
     Indication: COLON CANCER
     Dosage: UNIT DOSE: 600 MG
     Route: 040
     Dates: start: 20210314
  2. FLUOROURACILE TEVA [Suspect]
     Active Substance: FLUOROURACIL
     Indication: COLON CANCER
     Dosage: UNIT DOSE: 1750 MG
     Route: 042
     Dates: start: 20210314
  3. COLECALCIFEROL [Concomitant]
     Active Substance: CHOLECALCIFEROL
  4. OXALIPLATINO ACCORD HEALTHCARE [Concomitant]
     Active Substance: OXALIPLATIN
     Indication: COLON CANCER
     Dosage: UNIT DOSE: 110 MG
     Route: 042
     Dates: start: 20210314
  5. CALCIUM LEVOFOLINATE [Concomitant]
     Active Substance: LEVOLEUCOVORIN CALCIUM
     Indication: COLON CANCER
     Dosage: UNIT DOSE: 290 MG
     Route: 042
     Dates: start: 20210314

REACTIONS (4)
  - Chest pain [Recovering/Resolving]
  - Arteriospasm coronary [Recovering/Resolving]
  - Nausea [Recovering/Resolving]
  - Electrocardiogram ST segment elevation [Recovering/Resolving]

NARRATIVE: CASE EVENT DATE: 20210316
